FAERS Safety Report 7781471-X (Version None)
Quarter: 2011Q3

REPORT INFORMATION
  Report Type: 
  Country: None (occurrence: None)
  Receive Date: 20110923
  Receipt Date: 20110909
  Transmission Date: 20111222
  Serious: Yes (Other)
  Sender: FDA-Public Use
  Company Number: AUR-APL-2011-05015

PATIENT
  Age: 74 Year
  Sex: Male
  Weight: 70 kg

DRUGS (14)
  1. TRAMADOL HCL [Concomitant]
  2. AMITRIPTYLINE HYDROCHLORIDE [Concomitant]
  3. ACETAMINOPHEN [Concomitant]
  4. ALCLOMETASONE DIPROPIONATE [Concomitant]
  5. FLUOROURACIL [Concomitant]
  6. HYDROXOCOBALAMIN [Concomitant]
  7. ISPHAGULA HUSK (PLANTAGO OVATA HUSK) [Concomitant]
  8. LEVOTHYROXINE [Concomitant]
  9. DILTIAZEM HYDROCHLORIDE [Concomitant]
  10. RAMIPRIL [Suspect]
     Indication: PRODUCT USED FOR UNKNOWN INDICATION
  11. CETIRIZINE HCL [Concomitant]
  12. ASPIRIN [Concomitant]
  13. RISEDRONATE SODIUM [Concomitant]
  14. SIMVASTATIN [Concomitant]

REACTIONS (1)
  - RESTLESSNESS [None]
